FAERS Safety Report 24069958 (Version 2)
Quarter: 2024Q3

REPORT INFORMATION
  Report Type: Report from Study
  Country: CA (occurrence: CA)
  Receive Date: 20240710
  Receipt Date: 20240710
  Transmission Date: 20241017
  Serious: No
  Sender: ROCHE
  Company Number: CA-ROCHE-3486633

PATIENT
  Age: 61 Year
  Sex: Female
  Weight: 75.0 kg

DRUGS (10)
  1. ALECTINIB [Suspect]
     Active Substance: ALECTINIB
     Indication: Non-small cell lung cancer metastatic
     Route: 065
     Dates: start: 20200921
  2. ALECTINIB [Suspect]
     Active Substance: ALECTINIB
     Route: 048
     Dates: start: 20210723
  3. UBENIMEX [Concomitant]
     Active Substance: UBENIMEX
     Route: 048
     Dates: start: 20221113
  4. UBENIMEX [Concomitant]
     Active Substance: UBENIMEX
     Route: 048
     Dates: start: 20220925
  5. LEVOTHYROXINE SODIUM [Concomitant]
     Active Substance: LEVOTHYROXINE SODIUM
     Route: 048
     Dates: start: 20220925
  6. LEVOTHYROXINE SODIUM [Concomitant]
     Active Substance: LEVOTHYROXINE SODIUM
     Route: 001
     Dates: start: 20221113
  7. HERBALS\DIAMMONIUM GLYCYRRHIZINATE [Concomitant]
     Active Substance: HERBALS\DIAMMONIUM GLYCYRRHIZINATE
     Route: 048
     Dates: start: 20230708, end: 202309
  8. OMEPRAZOLE [Concomitant]
     Active Substance: OMEPRAZOLE
     Route: 048
     Dates: start: 20220925
  9. RABEPRAZOLE [Concomitant]
     Active Substance: RABEPRAZOLE
     Route: 048
     Dates: start: 20211120
  10. THYMOPEPTIDES [Concomitant]
     Route: 048
     Dates: start: 20220513

REACTIONS (1)
  - Hypokalaemia [Not Recovered/Not Resolved]

NARRATIVE: CASE EVENT DATE: 20230912
